FAERS Safety Report 21094669 (Version 3)
Quarter: 2022Q3

REPORT INFORMATION
  Report Type: Report from Study
  Country: CO (occurrence: CO)
  Receive Date: 20220718
  Receipt Date: 20220808
  Transmission Date: 20221026
  Serious: Yes (Hospitalization, Other)
  Sender: FDA-Public Use
  Company Number: CO-ASTELLAS-2019US050876

PATIENT
  Sex: Male

DRUGS (21)
  1. TACROLIMUS [Suspect]
     Active Substance: TACROLIMUS
     Indication: Renal transplant
     Route: 048
     Dates: start: 20171109
  2. TACROLIMUS [Suspect]
     Active Substance: TACROLIMUS
     Route: 048
     Dates: start: 2018, end: 201902
  3. TACROLIMUS [Suspect]
     Active Substance: TACROLIMUS
     Dosage: 2 MG EVERY 24 HOURS AND 3 MG EVERY 24 HOURS NEXT DAY
     Route: 048
     Dates: start: 201902, end: 20191211
  4. TACROLIMUS [Suspect]
     Active Substance: TACROLIMUS
     Route: 048
     Dates: start: 20191212
  5. TACROLIMUS [Suspect]
     Active Substance: TACROLIMUS
     Dosage: 4 MG, ONCE DAILY (TACROLIMUS 1MG, FOUR CAPSULES DAILY)
     Route: 048
     Dates: start: 2019
  6. TACROLIMUS [Suspect]
     Active Substance: TACROLIMUS
     Dosage: 1.5 MG, ONCE DAILY (1MG, ONE CAPSULE, AND 0.5 MG ONE CAPSULE FOR A TOTAL DOSE OF 1.5MG DAILY)
     Route: 048
  7. CARBAMAZEPINE [Interacting]
     Active Substance: CARBAMAZEPINE
     Indication: Product used for unknown indication
     Dosage: 1 DF, ONCE DAILY (1 TABLET EVERY 24 HOURS)
     Route: 065
  8. ATORVASTATIN [Concomitant]
     Active Substance: ATORVASTATIN
     Indication: Product used for unknown indication
     Dosage: 10 MG, ONCE DAILY AT NIGHT
     Route: 048
  9. CARVEDILOL [Concomitant]
     Active Substance: CARVEDILOL
     Indication: Cardiac disorder
     Route: 048
  10. MYCOPHENOLIC ACID [Concomitant]
     Active Substance: MYCOPHENOLIC ACID
     Indication: Renal transplant
     Route: 048
     Dates: start: 20171109
  11. PREDNISOLONE [Concomitant]
     Active Substance: PREDNISOLONE
     Indication: Renal transplant
     Route: 048
     Dates: start: 20171109
  12. CALCIUM [Concomitant]
     Active Substance: CALCIUM
     Indication: Osteoporosis
     Route: 048
  13. .ALPHA.-LIPOIC ACID [Concomitant]
     Active Substance: .ALPHA.-LIPOIC ACID
     Indication: Product used for unknown indication
     Route: 048
  14. ASPIRIN [Concomitant]
     Active Substance: ASPIRIN
     Indication: Anticoagulant therapy
     Route: 048
  15. ALENDRONATE [Concomitant]
     Active Substance: ALENDRONATE SODIUM
     Indication: Osteoporosis
     Route: 048
  16. VICTOZA [Concomitant]
     Active Substance: LIRAGLUTIDE
     Indication: Product used for unknown indication
     Dosage: 1.8 UNITS, UNKNOWN FREQ.
     Route: 058
  17. METFORMIN [Concomitant]
     Active Substance: METFORMIN HYDROCHLORIDE
     Indication: Product used for unknown indication
     Route: 048
  18. LANTUS [Concomitant]
     Active Substance: INSULIN GLARGINE
     Indication: Product used for unknown indication
     Dosage: 22 UNITS, UNKNOWN FREQ.
     Route: 058
  19. APIDRA [Concomitant]
     Active Substance: INSULIN GLULISINE
     Indication: Product used for unknown indication
     Dosage: 22 UNITS, UNKNOWN FREQ.
     Route: 058
  20. ETILEFRINE HYDROCHLORIDE [Concomitant]
     Active Substance: ETILEFRINE HYDROCHLORIDE
     Indication: Product used for unknown indication
     Dosage: UNK UNK, UNKNOWN FREQ.
     Route: 065
  21. INSULIN NOS [Concomitant]
     Active Substance: INSULIN NOS
     Indication: Product used for unknown indication
     Dosage: UNK UNK, UNKNOWN FREQ.
     Route: 065

REACTIONS (14)
  - Skin ulcer [Recovering/Resolving]
  - Localised infection [Recovering/Resolving]
  - Condition aggravated [Recovering/Resolving]
  - Foot fracture [Recovering/Resolving]
  - Localised infection [Recovering/Resolving]
  - Fall [Recovering/Resolving]
  - Wound dehiscence [Recovering/Resolving]
  - Osteomyelitis [Recovering/Resolving]
  - Staphylococcal abscess [Not Recovered/Not Resolved]
  - Postoperative wound infection [Not Recovered/Not Resolved]
  - Immunosuppressant drug level increased [Recovered/Resolved]
  - Immunosuppressant drug level decreased [Recovered/Resolved]
  - Immunosuppressant drug level increased [Not Recovered/Not Resolved]
  - Drug interaction [Unknown]

NARRATIVE: CASE EVENT DATE: 20180101
